FAERS Safety Report 6133022-3 (Version None)
Quarter: 2009Q1

REPORT INFORMATION
  Report Type: 
  Country: None (occurrence: None)
  Receive Date: 20090325
  Receipt Date: 20090325
  Transmission Date: 20090719
  Serious: Yes (Life-Threatening, Other)
  Sender: FDA-Public Use
  Company Number: None

PATIENT
  Age: 65 Year
  Sex: Male
  Weight: 111.5849 kg

DRUGS (2)
  1. CEFDINIR [Suspect]
     Indication: PNEUMONIA
     Dosage: 1 TAB TWICE DAILY PO
     Route: 048
     Dates: start: 20090317, end: 20090319
  2. LEVAQUIN [Suspect]
     Dosage: 1 TAB ONCE DAILY PO
     Route: 048
     Dates: start: 20090318, end: 20090319

REACTIONS (2)
  - RASH ERYTHEMATOUS [None]
  - RASH GENERALISED [None]
